FAERS Safety Report 20288656 (Version 2)
Quarter: 2022Q1

REPORT INFORMATION
  Report Type: Spontaneous
  Country: JP (occurrence: JP)
  Receive Date: 20220104
  Receipt Date: 20220208
  Transmission Date: 20220423
  Serious: Yes (Hospitalization)
  Sender: FDA-Public Use
  Company Number: JP-CHUGAI-2021034283

PATIENT
  Age: 79 Year
  Sex: Male

DRUGS (7)
  1. XELODA [Suspect]
     Active Substance: CAPECITABINE
     Indication: Colon cancer
     Dosage: 3600 MILLIGRAM
     Route: 048
  2. XELODA [Suspect]
     Active Substance: CAPECITABINE
     Dosage: 3000 MILLIGRAM, QD
     Route: 048
     Dates: start: 20211202
  3. OXALIPLATIN [Suspect]
     Active Substance: OXALIPLATIN
     Indication: Colon cancer
     Dosage: 250 MILLIGRAM/SQ. METER, SINGLE
     Route: 041
     Dates: start: 20211201, end: 20211201
  4. OXALIPLATIN [Suspect]
     Active Substance: OXALIPLATIN
     Dosage: 200 MILLIGRAM/SQ. METER
     Route: 041
     Dates: start: 20211215
  5. OXALIPLATIN [Suspect]
     Active Substance: OXALIPLATIN
     Dosage: 250 MILLIGRAM, QD
     Route: 041
     Dates: end: 20211216
  6. OXALIPLATIN [Concomitant]
     Active Substance: OXALIPLATIN
     Indication: Colon cancer
     Dosage: 250 MILLIGRAM/SQ. METER
     Route: 041
  7. OXALIPLATIN [Concomitant]
     Active Substance: OXALIPLATIN
     Dosage: 200 MILLIGRAM/SQ. METER
     Route: 041
     Dates: start: 20211215

REACTIONS (2)
  - Platelet count decreased [Recovering/Resolving]
  - Off label use [Unknown]

NARRATIVE: CASE EVENT DATE: 20211202
